FAERS Safety Report 8806177 (Version 1)
Quarter: 2012Q4

REPORT INFORMATION
  Report Type: Spontaneous
  Country: US (occurrence: None)
  Receive Date: 20120919
  Receipt Date: 20120919
  Transmission Date: 20130627
  Serious: Yes (Disabling, Other)
  Sender: FDA-Public Use
  Company Number: None

PATIENT
  Sex: Female
  Weight: 63.5 kg

DRUGS (2)
  1. YASMIN [Suspect]
     Dosage: 1 1x a day po
     Route: 048
     Dates: start: 20020901, end: 20060901
  2. YAZ [Suspect]
     Dosage: 1 1x a day po
     Route: 048
     Dates: start: 20060901, end: 20100301

REACTIONS (5)
  - Migraine [None]
  - Depression [None]
  - Anxiety [None]
  - Alopecia [None]
  - Loss of employment [None]
